FAERS Safety Report 6956497-6 (Version None)
Quarter: 2010Q3

REPORT INFORMATION
  Report Type: 
  Country: None (occurrence: None)
  Receive Date: 20100830
  Receipt Date: 20100819
  Transmission Date: 20110219
  Serious: Yes (Other)
  Sender: FDA-Public Use
  Company Number: US-AMGEN-QUU430329

PATIENT
  Age: 64 Year
  Sex: Female
  Weight: 64.9 kg

DRUGS (5)
  1. NEULASTA [Suspect]
     Indication: CHEMOTHERAPY
     Route: 058
     Dates: start: 20100210
  2. ADRIAMYCIN PFS [Concomitant]
     Route: 042
     Dates: start: 20100801
  3. CYTOXAN [Concomitant]
  4. AVASTIN [Concomitant]
     Route: 042
     Dates: start: 20100801
  5. CISPLATIN [Concomitant]
     Route: 042
     Dates: start: 20091201

REACTIONS (2)
  - NEUTROPENIA [None]
  - THERAPEUTIC RESPONSE DECREASED [None]
